FAERS Safety Report 19891702 (Version 1)
Quarter: 2021Q3

REPORT INFORMATION
  Report Type: Spontaneous
  Country: PL (occurrence: PL)
  Receive Date: 20210928
  Receipt Date: 20210928
  Transmission Date: 20211014
  Serious: Yes (Hospitalization)
  Sender: FDA-Public Use
  Company Number: PL-MYLANLABS-2021M1065878

PATIENT
  Age: 64 Year
  Sex: Male

DRUGS (2)
  1. GLIMEPIRIDE. [Suspect]
     Active Substance: GLIMEPIRIDE
     Indication: TYPE 2 DIABETES MELLITUS
     Dosage: UNK UNK, QD (2 UNK, BID)
     Route: 065
  2. GLUCOSE [Concomitant]
     Active Substance: DEXTROSE
     Indication: BLOOD GLUCOSE DECREASED
     Dosage: UNK
     Route: 042

REACTIONS (2)
  - Hypoglycaemic encephalopathy [Unknown]
  - Toxicity to various agents [Unknown]
